FAERS Safety Report 4868250-8 (Version None)
Quarter: 2005Q4

REPORT INFORMATION
  Report Type: 
  Country: None (occurrence: None)
  Receive Date: 20051229
  Receipt Date: 20051221
  Transmission Date: 20060501
  Serious: Yes (Other)
  Sender: FDA-Public Use
  Company Number: US-SANOFI-SYNTHELABO-F03200500193

PATIENT
  Sex: Male

DRUGS (1)
  1. OXALIPLATIN [Suspect]
     Indication: BRAIN NEOPLASM
     Route: 042
     Dates: start: 20051214, end: 20051214

REACTIONS (5)
  - ABDOMINAL PAIN [None]
  - CONVULSION [None]
  - INCORRECT DOSE ADMINISTERED [None]
  - LARYNGOSPASM [None]
  - SPEECH DISORDER [None]
